FAERS Safety Report 8002742-8 (Version None)
Quarter: 2011Q4

REPORT INFORMATION
  Report Type: 
  Country: None (occurrence: None)
  Receive Date: 20111222
  Receipt Date: 20111216
  Transmission Date: 20120403
  Serious: Yes (Disabling)
  Sender: FDA-Public Use
  Company Number: US-US-EMD SERONO, INC.-7102345

PATIENT
  Sex: Female
  Weight: 59 kg

DRUGS (1)
  1. REBIF [Suspect]
     Indication: PRODUCT USED FOR UNKNOWN INDICATION
     Route: 058
     Dates: start: 20070316

REACTIONS (4)
  - VISUAL IMPAIRMENT [None]
  - HEPATIC ENZYME INCREASED [None]
  - INJECTION SITE RASH [None]
  - INJECTION SITE NODULE [None]
